FAERS Safety Report 5118033-9 (Version None)
Quarter: 2006Q3

REPORT INFORMATION
  Report Type: 
  Country: None (occurrence: None)
  Receive Date: 20060929
  Receipt Date: 20040902
  Transmission Date: 20061208
  Serious: Yes (Death, Hospitalization)
  Sender: FDA-Public Use
  Company Number: US-BOEHRINGER INGELHEIM PHARMACEUTICALS, INC.-2004-BP-07623BP

PATIENT
  Sex: Male
  Weight: 83 kg

DRUGS (1)
  1. TIPRANAVIR / RITONAVIR CAPSULES [Suspect]
     Indication: HIV INFECTION
     Dosage: TPV/R 1000/400MG
     Route: 048
     Dates: start: 20030918, end: 20040823

REACTIONS (15)
  - AIDS ENCEPHALOPATHY [None]
  - CANDIDIASIS [None]
  - CARDIAC HYPERTROPHY [None]
  - DEEP VEIN THROMBOSIS [None]
  - DEHYDRATION [None]
  - DIARRHOEA [None]
  - DYSARTHRIA [None]
  - DYSPHAGIA [None]
  - HYPOTENSION [None]
  - LOBAR PNEUMONIA [None]
  - MENINGITIS [None]
  - NERVOUS SYSTEM DISORDER [None]
  - ORAL INFECTION [None]
  - PULMONARY EMBOLISM [None]
  - THERAPY NON-RESPONDER [None]
